FAERS Safety Report 5107104-9 (Version None)
Quarter: 2006Q3

REPORT INFORMATION
  Report Type: 
  Country: None (occurrence: None)
  Receive Date: 20060913
  Receipt Date: 20060829
  Transmission Date: 20061208
  Serious: Yes (Other)
  Sender: FDA-Public Use
  Company Number: 2006S1007630

PATIENT
  Age: 65 Year
  Sex: Male

DRUGS (7)
  1. EXTENDED PHENYTOIN SODIUM [Suspect]
     Indication: GRAND MAL CONVULSION
     Dosage: SEE IMAGE
     Route: 048
     Dates: start: 20060201, end: 20060801
  2. EXTENDED PHENYTOIN SODIUM [Suspect]
     Indication: GRAND MAL CONVULSION
     Dosage: SEE IMAGE
     Route: 048
     Dates: start: 20060201, end: 20060801
  3. EXTENDED PHENYTOIN SODIUM [Suspect]
     Indication: GRAND MAL CONVULSION
     Dosage: SEE IMAGE
     Route: 048
     Dates: start: 20060201, end: 20060801
  4. ATORVASTATIN [Concomitant]
  5. IRBESARTAN [Concomitant]
  6. ASPIRIN [Concomitant]
  7. GABAPENTIN [Concomitant]

REACTIONS (4)
  - ANTICONVULSANT DRUG LEVEL DECREASED [None]
  - CONVULSION [None]
  - DRUG LEVEL CHANGED [None]
  - THERAPEUTIC RESPONSE UNEXPECTED WITH DRUG SUBSTITUTION [None]
